FAERS Safety Report 4358673-8 (Version None)
Quarter: 2004Q2

REPORT INFORMATION
  Report Type: 
  Country: None (occurrence: None)
  Receive Date: 20040511
  Receipt Date: 20040429
  Transmission Date: 20050107
  Serious: Yes (Hospitalization)
  Sender: FDA-Public Use
  Company Number: 04P-163-0259217-00

PATIENT
  Age: 47 Year
  Sex: Female
  Weight: 88.4514 kg

DRUGS (15)
  1. HUMIRA [Suspect]
     Indication: RHEUMATOID ARTHRITIS
     Dosage: SEE IMAGE
     Route: 058
     Dates: start: 20030801, end: 20031101
  2. HUMIRA [Suspect]
     Indication: RHEUMATOID ARTHRITIS
     Dosage: SEE IMAGE
     Route: 058
     Dates: start: 20031101
  3. TRAMADOL HCL [Concomitant]
  4. PREDNISONE [Concomitant]
  5. OXYCODONE HCL [Concomitant]
  6. ETODOLAC [Concomitant]
  7. MULTI-VITAMINS [Concomitant]
  8. CALCIUM [Concomitant]
  9. VITAMIN B COMPLEX CAP [Concomitant]
  10. METHOTREXATE [Concomitant]
  11. OMEPRAZOLE [Concomitant]
  12. SERTRALINE HYDROCHLORIDE [Concomitant]
  13. MAXZIDE [Concomitant]
  14. TRAZODONE HCL [Concomitant]
  15. SODIUM AUROTHIOMALATE [Concomitant]

REACTIONS (2)
  - MYELODYSPLASTIC SYNDROME [None]
  - PNEUMOCYSTIS CARINII PNEUMONIA [None]
